FAERS Safety Report 11889893 (Version 1)
Quarter: 2016Q1

REPORT INFORMATION
  Report Type: Spontaneous
  Country: US (occurrence: US)
  Receive Date: 20160105
  Receipt Date: 20160105
  Transmission Date: 20160526
  Serious: No
  Sender: FDA-Public Use
  Company Number: US-PERRIGO-15US002921

PATIENT
  Age: 22 Year
  Sex: Female
  Weight: 54.42 kg

DRUGS (3)
  1. CHLORTAB                           /00072502/ [Concomitant]
     Indication: SEASONAL ALLERGY
     Dosage: UNK
     Route: 048
  2. LORATADINE. [Concomitant]
     Active Substance: LORATADINE
     Indication: SEASONAL ALLERGY
     Dosage: UNK
     Route: 048
  3. GUAIFENESIN 600 MG 498 [Suspect]
     Active Substance: GUAIFENESIN
     Indication: RHINORRHOEA
     Dosage: 600 MG, SINGLE
     Route: 048
     Dates: start: 20150312, end: 20150312

REACTIONS (3)
  - Abdominal pain upper [Recovered/Resolved]
  - Off label use [Recovered/Resolved]
  - Hypersensitivity [Recovered/Resolved]

NARRATIVE: CASE EVENT DATE: 20150312
